FAERS Safety Report 5537102-2 (Version None)
Quarter: 2007Q4

REPORT INFORMATION
  Report Type: 
  Country: None (occurrence: None)
  Receive Date: 20071204
  Receipt Date: 20071116
  Transmission Date: 20080405
  Serious: Yes (Life-Threatening)
  Sender: FDA-Public Use
  Company Number: STI-2007-02019

PATIENT
  Age: 2 Year
  Sex: Male

DRUGS (5)
  1. CLINDAMYCIN HCL [Suspect]
     Indication: URTICARIA
  2. AUGMENTIN-DUO (CLAVULIN) [Concomitant]
  3. CLARITHROMYCIN [Concomitant]
  4. FLOXACILLIN SODIUM [Concomitant]
  5. PENICILLIN V [Concomitant]

REACTIONS (2)
  - CONDITION AGGRAVATED [None]
  - URTICARIA [None]
